FAERS Safety Report 8471654-8 (Version None)
Quarter: 2012Q2

REPORT INFORMATION
  Report Type: 
  Country: None (occurrence: None)
  Receive Date: 20120627
  Receipt Date: 20120620
  Transmission Date: 20120825
  Serious: Yes (Other)
  Sender: FDA-Public Use
  Company Number: BR-ABBOTT-12P-020-0949782-00

PATIENT
  Age: 18 Year
  Sex: Female

DRUGS (6)
  1. VALPROATE SODIUM [Suspect]
     Dosage: 750 MG DAILY
  2. LAMOTRIGINE [Suspect]
     Indication: EPILEPSY
     Dosage: 300 MG DAILY
  3. VALPROATE SODIUM [Suspect]
     Indication: EPILEPSY
     Dosage: 1000 MG DAILY
  4. LAMOTRIGINE [Suspect]
     Dosage: 325 MG DAILY
  5. LAMOTRIGINE [Suspect]
     Dosage: 350 MG DAILY
  6. NITRAZEPAM [Concomitant]
     Indication: EPILEPSY
     Dosage: 10 MG DAILY

REACTIONS (3)
  - TREMOR [None]
  - TIC [None]
  - TOXICITY TO VARIOUS AGENTS [None]
